FAERS Safety Report 9350748 (Version 3)
Quarter: 2017Q1

REPORT INFORMATION
  Report Type: Report from Study
  Country: FR (occurrence: FR)
  Receive Date: 20130617
  Receipt Date: 20170310
  Transmission Date: 20170429
  Serious: Yes (Hospitalization, Other)
  Sender: FDA-Public Use
  Company Number: FR-ROCHE-1204837

PATIENT
  Age: 35 Year
  Sex: Female
  Weight: 38 kg

DRUGS (19)
  1. RIBAVIRIN. [Suspect]
     Active Substance: RIBAVIRIN
     Route: 048
     Dates: end: 20130206
  2. LASILIX [Suspect]
     Active Substance: FUROSEMIDE
     Indication: CARDIAC FAILURE
     Route: 048
     Dates: start: 20130131, end: 201302
  3. ALPRAZOLAM. [Concomitant]
     Active Substance: ALPRAZOLAM
  4. NOVORAPID [Concomitant]
     Active Substance: INSULIN ASPART
     Route: 065
  5. LANTUS [Concomitant]
     Active Substance: INSULIN GLARGINE
     Indication: TYPE 1 DIABETES MELLITUS
     Route: 058
  6. EXJADE [Concomitant]
     Active Substance: DEFERASIROX
     Indication: HAEMOCHROMATOSIS
     Route: 048
     Dates: start: 201208
  7. NOVOMIX [Concomitant]
     Active Substance: INSULIN ASPART
  8. DESFERAL [Concomitant]
     Active Substance: DEFEROXAMINE MESYLATE
  9. ALDACTONE [Concomitant]
     Active Substance: SPIRONOLACTONE
     Route: 065
     Dates: start: 20130403, end: 20130415
  10. SPECIAFOLDINE [Concomitant]
     Active Substance: FOLIC ACID
     Indication: HAEMOLYTIC ANAEMIA
     Route: 048
  11. RIBAVIRIN. [Suspect]
     Active Substance: RIBAVIRIN
     Indication: CHRONIC HEPATITIS C
     Route: 048
     Dates: start: 20121008, end: 20130130
  12. PEGINTERFERON ALFA-2B [Suspect]
     Active Substance: PEGINTERFERON ALFA-2B
     Indication: CHRONIC HEPATITIS C
     Route: 058
     Dates: start: 20121008, end: 20130128
  13. AVLOCARDYL [Concomitant]
     Active Substance: PROPRANOLOL HYDROCHLORIDE
     Indication: VARICES OESOPHAGEAL
     Dosage: IN MORNING
     Route: 048
  14. DIACIN [Concomitant]
     Route: 048
  15. NEDAL [Concomitant]
     Indication: HAEMOLYTIC ANAEMIA
     Route: 048
  16. ORACILLINE [Concomitant]
     Active Substance: PENICILLIN V
     Route: 048
  17. AVLOCARDYL [Concomitant]
     Active Substance: PROPRANOLOL HYDROCHLORIDE
     Dosage: IN MORNING
     Route: 048
  18. NEORAL [Concomitant]
     Active Substance: CYCLOSPORINE
     Indication: HAEMOLYTIC ANAEMIA
     Route: 048
  19. FERRIPROX [Concomitant]
     Active Substance: DEFERIPRONE

REACTIONS (8)
  - Vitamin C deficiency [Not Recovered/Not Resolved]
  - Diabetes mellitus [Recovered/Resolved]
  - Renal failure [Recovered/Resolved]
  - Renal failure [Unknown]
  - Atrial tachycardia [Recovered/Resolved]
  - Cardiac failure [Recovered/Resolved]
  - Pulmonary oedema [Recovered/Resolved]
  - Anaemia [Recovered/Resolved]

NARRATIVE: CASE EVENT DATE: 20130130
